FAERS Safety Report 8789604 (Version 1)
Quarter: 2012Q4

REPORT INFORMATION
  Report Type: Spontaneous
  Country: US (occurrence: None)
  Receive Date: 20120910
  Receipt Date: 20120910
  Transmission Date: 20130627
  Serious: No
  Sender: FDA-Public Use
  Company Number: None

PATIENT
  Age: 67 Year
  Sex: Female
  Weight: 72.58 kg

DRUGS (2)
  1. LISINOPRIL [Suspect]
     Indication: HYPERTENSION
     Dosage: only one pill 12.5 tab one every day oral
     Route: 048
     Dates: start: 20120801
  2. YEAST [Suspect]
     Dosage: 600 mg 2 capsules p/d oral
     Route: 048
     Dates: start: 20120801, end: 20120802

REACTIONS (5)
  - Abdominal pain upper [None]
  - Paraesthesia [None]
  - Rash [None]
  - Abdominal distension [None]
  - Rash pruritic [None]
